FAERS Safety Report 8958391 (Version 1)
Quarter: 2012Q4

REPORT INFORMATION
  Report Type: 
  Country: GB (occurrence: GB)
  Receive Date: 20121210
  Receipt Date: 20121210
  Transmission Date: 20130627
  Serious: Yes (Other)
  Sender: FDA-Public Use
  Company Number: GB-GLAXOSMITHKLINE-B0849082A

PATIENT
  Sex: Male

DRUGS (4)
  1. AVODART [Suspect]
     Indication: BENIGN PROSTATIC HYPERPLASIA
     Dosage: .5MG Per day
     Route: 065
     Dates: start: 200709
  2. UNKNOWN MEDICATION [Concomitant]
     Indication: GASTRIC DISORDER
  3. ANTI HYPERTENSIVE [Concomitant]
     Indication: HYPERTENSION
  4. ZOLADEX [Concomitant]

REACTIONS (3)
  - Prostate cancer [Not Recovered/Not Resolved]
  - Dysphonia [Recovered/Resolved]
  - Abnormal behaviour [Recovered/Resolved]
